FAERS Safety Report 18724254 (Version 1)
Quarter: 2021Q1

REPORT INFORMATION
  Report Type: Spontaneous
  Country: US (occurrence: US)
  Receive Date: 20210108
  Receipt Date: 20210108
  Transmission Date: 20210419
  Serious: Yes (Hospitalization)
  Sender: FDA-Public Use
  Company Number: None

PATIENT
  Age: 60 Year
  Sex: Female

DRUGS (2)
  1. BENDEKA [Suspect]
     Active Substance: BENDAMUSTINE HYDROCHLORIDE
     Indication: B-CELL LYMPHOMA
     Dosage: FREQUENCY:: DAYS 1+2 EVERY 28 DAYS
     Route: 042
     Dates: start: 202007
  2. DIPHENHYDRAMINE HCL 50 MG/ML HIKMA [Suspect]
     Active Substance: DIPHENHYDRAMINE HYDROCHLORIDE
     Indication: B-CELL LYMPHOMA
     Dosage: FREQUENCY: DAYS 1+2 EVERY 28 DAYS
     Route: 042
     Dates: start: 202007

REACTIONS (1)
  - Cholecystectomy [None]

NARRATIVE: CASE EVENT DATE: 20200816
